FAERS Safety Report 20538172 (Version 1)
Quarter: 2022Q1

REPORT INFORMATION
  Report Type: Spontaneous
  Country: CN (occurrence: CN)
  Receive Date: 20220302
  Receipt Date: 20220302
  Transmission Date: 20220423
  Serious: Yes (Hospitalization, Other)
  Sender: FDA-Public Use
  Company Number: CN-BAYER-2021-201502

PATIENT
  Age: 77 Year
  Sex: Male

DRUGS (2)
  1. RIVAROXABAN [Interacting]
     Active Substance: RIVAROXABAN
     Indication: Platelet aggregation inhibition
     Dosage: 20 MG, QD?XARELTO 20 MG
     Route: 048
     Dates: start: 20190411, end: 20200112
  2. CLOPIDOGREL BISULFATE [Interacting]
     Active Substance: CLOPIDOGREL BISULFATE
     Indication: Platelet aggregation inhibition
     Dosage: 75 MG, QD
     Route: 048
     Dates: start: 20190411, end: 20200112

REACTIONS (7)
  - Duodenal ulcer haemorrhage [Recovering/Resolving]
  - Lumbar vertebral fracture [Unknown]
  - Melaena [Recovering/Resolving]
  - Diarrhoea [Recovering/Resolving]
  - Chronic gastritis [Unknown]
  - Labelled drug-drug interaction medication error [Unknown]
  - Contraindicated product administered [Unknown]

NARRATIVE: CASE EVENT DATE: 20190411
